FAERS Safety Report 9475880 (Version 1)
Quarter: 2013Q3

REPORT INFORMATION
  Report Type: Spontaneous
  Country: US (occurrence: US)
  Receive Date: 20130826
  Receipt Date: 20130826
  Transmission Date: 20140515
  Serious: No
  Sender: FDA-Public Use
  Company Number: US-PFIZER INC-2013245773

PATIENT
  Age: 31 Year
  Sex: Male
  Weight: 76.64 kg

DRUGS (2)
  1. NEURONTIN [Suspect]
     Indication: FIBROMYALGIA
     Dosage: 900 MG, 4X/DAY
     Dates: start: 2003, end: 200910
  2. NEURONTIN [Suspect]
     Indication: DIABETIC NEUROPATHY

REACTIONS (2)
  - Off label use [Unknown]
  - Drug ineffective for unapproved indication [Unknown]
